FAERS Safety Report 8058882-0 (Version None)
Quarter: 2012Q1

REPORT INFORMATION
  Report Type: 
  Country: None (occurrence: None)
  Receive Date: 20120120
  Receipt Date: 20111018
  Transmission Date: 20120608
  Serious: Yes (Hospitalization)
  Sender: FDA-Public Use
  Company Number: US-BRISTOL-MYERS SQUIBB COMPANY-16172421

PATIENT
  Age: 84 Year
  Sex: Male

DRUGS (1)
  1. YERVOY [Suspect]
     Dosage: RECEIVED 4 DOSES.

REACTIONS (1)
  - HOSPITALISATION [None]
